FAERS Safety Report 16528958 (Version 3)
Quarter: 2019Q3

REPORT INFORMATION
  Report Type: Spontaneous
  Country: JP (occurrence: JP)
  Receive Date: 20190703
  Receipt Date: 20190705
  Transmission Date: 20191004
  Serious: Yes (Hospitalization, Other)
  Sender: FDA-Public Use
  Company Number: PHJP2017JP010036

PATIENT
  Age: 77 Year
  Sex: Female

DRUGS (2)
  1. ESOMEPRAZOLE. [Concomitant]
     Active Substance: ESOMEPRAZOLE MAGNESIUM
     Indication: PRODUCT USED FOR UNKNOWN INDICATION
     Dosage: 20 MG, UNK
     Route: 048
  2. DICLOFENAC [Suspect]
     Active Substance: DICLOFENAC
     Indication: LUMBAR SPINAL STENOSIS
     Dosage: 75 MG, QD
     Route: 048

REACTIONS (21)
  - Small intestine ulcer [Unknown]
  - Abdominal pain lower [Recovered/Resolved]
  - Iron deficiency anaemia [Unknown]
  - Vomiting [Unknown]
  - Gastrointestinal disorder [Unknown]
  - Decreased appetite [Recovered/Resolved]
  - Inflammation [Recovering/Resolving]
  - Gastric ulcer [Unknown]
  - Anaemia [Unknown]
  - Small intestinal stenosis [Unknown]
  - Oedema peripheral [Unknown]
  - Renal disorder [Unknown]
  - Product use in unapproved indication [Unknown]
  - Enterocolitis [Unknown]
  - Hypoproteinaemia [Unknown]
  - Hypoalbuminaemia [Unknown]
  - Hypophagia [Unknown]
  - General physical health deterioration [Unknown]
  - Diarrhoea [Recovered/Resolved]
  - Ileus [Unknown]
  - Pyrexia [Unknown]
